FAERS Safety Report 17326734 (Version 1)
Quarter: 2020Q1

REPORT INFORMATION
  Report Type: Spontaneous
  Country: US (occurrence: US)
  Receive Date: 20200127
  Receipt Date: 20200127
  Transmission Date: 20200409
  Serious: No
  Sender: FDA-Public Use
  Company Number: US-ABBVIE-19K-163-2938363-00

PATIENT
  Sex: Female

DRUGS (1)
  1. LUPRON [Suspect]
     Active Substance: LEUPROLIDE ACETATE
     Indication: PRODUCT USED FOR UNKNOWN INDICATION
     Route: 065

REACTIONS (13)
  - Breast swelling [Unknown]
  - Alopecia [Unknown]
  - Anger [Unknown]
  - Pain in extremity [Unknown]
  - Diarrhoea [Unknown]
  - Dizziness [Unknown]
  - Swelling face [Unknown]
  - Mood swings [Unknown]
  - Breast induration [Unknown]
  - Feeling abnormal [Unknown]
  - Poor quality sleep [Unknown]
  - Fatigue [Unknown]
  - Erythema [Unknown]
